FAERS Safety Report 25837628 (Version 1)
Quarter: 2025Q3

REPORT INFORMATION
  Report Type: Spontaneous
  Country: EU (occurrence: EU)
  Receive Date: 20250923
  Receipt Date: 20250923
  Transmission Date: 20251021
  Serious: Yes (Other)
  Sender: ELI LILLY AND COMPANY
  Company Number: EU-ELI_LILLY_AND_COMPANY-DE202508025442

PATIENT
  Age: 58 Year
  Sex: Female

DRUGS (3)
  1. LEBRIKIZUMAB [Suspect]
     Active Substance: LEBRIKIZUMAB
     Indication: Dermatitis atopic
     Route: 065
     Dates: start: 20250326
  2. LEBRIKIZUMAB [Suspect]
     Active Substance: LEBRIKIZUMAB
     Route: 065
     Dates: start: 20250403
  3. LEBRIKIZUMAB [Suspect]
     Active Substance: LEBRIKIZUMAB
     Route: 065
     Dates: start: 20250808, end: 20250808

REACTIONS (5)
  - Aspartate aminotransferase increased [Not Recovered/Not Resolved]
  - Monocyte percentage increased [Not Recovered/Not Resolved]
  - Gamma-glutamyltransferase increased [Not Recovered/Not Resolved]
  - Alanine aminotransferase increased [Not Recovered/Not Resolved]
  - Off label use [Unknown]
